FAERS Safety Report 9137372 (Version 3)
Quarter: 2013Q2

REPORT INFORMATION
  Report Type: Spontaneous
  Country: US (occurrence: US)
  Receive Date: 20130304
  Receipt Date: 20130418
  Transmission Date: 20140414
  Serious: No
  Sender: FDA-Public Use
  Company Number: US-PFIZER INC-2013070855

PATIENT
  Sex: Female

DRUGS (2)
  1. CLEOCIN [Suspect]
     Dosage: 100 MG, UNK
     Route: 067
  2. CLEOCIN [Suspect]
     Dosage: UNK

REACTIONS (1)
  - Product packaging quantity issue [Unknown]
